FAERS Safety Report 7308611-0 (Version None)
Quarter: 2011Q1

REPORT INFORMATION
  Report Type: 
  Country: None (occurrence: None)
  Receive Date: 20110211
  Receipt Date: 20110127
  Transmission Date: 20110831
  Serious: Yes (Hospitalization)
  Sender: FDA-Public Use
  Company Number: 026606

PATIENT
  Age: 37 Year
  Sex: Female

DRUGS (2)
  1. EPINEPHRINE [Suspect]
     Dosage: (1 MG, 1:10,000 INTRAVENOUS (NOT OTHERWISE SPECIFIED) ; (1 MG, IN NACL 0.9%)
     Route: 042
  2. PREDNISOLONE [Suspect]

REACTIONS (8)
  - COUGH [None]
  - RALES [None]
  - STRESS CARDIOMYOPATHY [None]
  - PULMONARY OEDEMA [None]
  - FIBRIN D DIMER INCREASED [None]
  - CARDIAC FAILURE [None]
  - HAEMOPTYSIS [None]
  - SHOCK [None]
